FAERS Safety Report 4675867-2 (Version None)
Quarter: 2005Q2

REPORT INFORMATION
  Report Type: 
  Country: None (occurrence: None)
  Receive Date: 20050526
  Receipt Date: 20050526
  Transmission Date: 20051028
  Serious: Yes (Hospitalization)
  Sender: FDA-Public Use
  Company Number: None

PATIENT
  Age: 77 Year
  Sex: Male
  Weight: 90 kg

DRUGS (3)
  1. REMICADE [Suspect]
     Indication: RHEUMATOID ARTHRITIS
     Dosage: 270 MG Q 2 MONTHS X 5 YRS
     Dates: start: 20001201, end: 20050301
  2. IMUVAN [Concomitant]
  3. PREDNISONE [Concomitant]

REACTIONS (1)
  - PNEUMONIA ASPERGILLUS [None]
